FAERS Safety Report 15853571 (Version 1)
Quarter: 2019Q1

REPORT INFORMATION
  Report Type: Spontaneous
  Country: US (occurrence: US)
  Receive Date: 20190122
  Receipt Date: 20190122
  Transmission Date: 20190417
  Serious: No
  Sender: FDA-Public Use
  Company Number: US-ORPHAN EUROPE-2061547

PATIENT
  Sex: Female

DRUGS (1)
  1. CYSTADANE [Suspect]
     Active Substance: BETAINE
     Indication: DRUG LEVEL INCREASED
     Route: 048
     Dates: start: 1995

REACTIONS (4)
  - Vaginal lesion [Recovered/Resolved]
  - Bacterial infection [Recovering/Resolving]
  - Constipation [Unknown]
  - Alopecia [Unknown]
